FAERS Safety Report 5247089-8 (Version None)
Quarter: 2007Q1

REPORT INFORMATION
  Report Type: 
  Country: None (occurrence: None)
  Receive Date: 20070221
  Receipt Date: 20070209
  Transmission Date: 20070707
  Serious: Yes (Hospitalization, Other)
  Sender: FDA-Public Use
  Company Number: 2005BI015947

PATIENT
  Age: 35 Year
  Sex: Male

DRUGS (3)
  1. AVONEX [Suspect]
     Indication: MULTIPLE SCLEROSIS
     Dosage: 30 UG; QW; IM
     Route: 030
     Dates: start: 20001201
  2. AVONEX [Suspect]
     Indication: MULTIPLE SCLEROSIS
     Dosage: 30 UG; QW; IM
     Route: 030
  3. VIOXX [Concomitant]

REACTIONS (6)
  - FATIGUE [None]
  - GRAND MAL CONVULSION [None]
  - HAEMOPTYSIS [None]
  - JOINT DISLOCATION [None]
  - MULTIPLE SCLEROSIS [None]
  - MUSCLE ATROPHY [None]
